FAERS Safety Report 16400472 (Version 1)
Quarter: 2019Q2

REPORT INFORMATION
  Report Type: Spontaneous
  Country: US (occurrence: US)
  Receive Date: 20190606
  Receipt Date: 20190606
  Transmission Date: 20190711
  Serious: Yes (Hospitalization, Other)
  Sender: FDA-Public Use
  Company Number: US-BRISTOL-MYERS SQUIBB COMPANY-BMS-2019-053078

PATIENT
  Sex: Female
  Weight: 63.96 kg

DRUGS (1)
  1. ELIQUIS [Suspect]
     Active Substance: APIXABAN
     Indication: PULMONARY EMBOLISM
     Dosage: 5 MILLIGRAM, BID
     Route: 048
     Dates: start: 2018

REACTIONS (17)
  - Loss of consciousness [Unknown]
  - Malaise [Unknown]
  - Gait disturbance [Unknown]
  - Pruritus [Unknown]
  - Headache [Unknown]
  - Head injury [Unknown]
  - Dizziness [Unknown]
  - Frequent bowel movements [Unknown]
  - Heart rate increased [Unknown]
  - Eye irritation [Unknown]
  - Decreased appetite [Unknown]
  - Abdominal pain upper [Unknown]
  - Pain [Unknown]
  - Fall [Unknown]
  - Hypotension [Recovered/Resolved]
  - Product dose omission [Unknown]
  - Back pain [Unknown]
